FAERS Safety Report 22190081 (Version 1)
Quarter: 2023Q2

REPORT INFORMATION
  Report Type: Spontaneous
  Country: US (occurrence: US)
  Receive Date: 20230410
  Receipt Date: 20230410
  Transmission Date: 20230722
  Serious: No
  Sender: FDA-Public Use
  Company Number: US-SA-SAC20230410000193

PATIENT
  Sex: Female

DRUGS (1)
  1. DUPIXENT [Suspect]
     Active Substance: DUPILUMAB
     Indication: Dermatitis atopic
     Dosage: 300 MG, QOW
     Route: 058
     Dates: start: 20221005

REACTIONS (6)
  - Groin pain [Unknown]
  - Condition aggravated [Unknown]
  - Back disorder [Unknown]
  - Condition aggravated [Unknown]
  - Nerve compression [Unknown]
  - Condition aggravated [Unknown]
